FAERS Safety Report 23071204 (Version 1)
Quarter: 2023Q4

REPORT INFORMATION
  Report Type: Spontaneous
  Country: CN (occurrence: CN)
  Receive Date: 20231016
  Receipt Date: 20231016
  Transmission Date: 20240110
  Serious: Yes (Other)
  Sender: FDA-Public Use
  Company Number: CN-BAYER-2023A142207

PATIENT
  Age: 76 Year
  Sex: Male
  Weight: 70 kg

DRUGS (1)
  1. XARELTO [Suspect]
     Active Substance: RIVAROXABAN
     Indication: Atrial fibrillation
     Dosage: 1 DF, QD
     Route: 048
     Dates: start: 20230423, end: 20230425

REACTIONS (13)
  - Arrhythmia [Unknown]
  - Abdominal discomfort [Recovering/Resolving]
  - Breath sounds abnormal [Unknown]
  - Protein total decreased [Unknown]
  - Blood albumin decreased [Unknown]
  - Aspartate aminotransferase increased [Unknown]
  - Blood cholinesterase decreased [Unknown]
  - High density lipoprotein decreased [Unknown]
  - Apolipoprotein E abnormal [Unknown]
  - Blood glucose decreased [Unknown]
  - Blood uric acid decreased [Unknown]
  - Prescribed underdose [Unknown]
  - Underdose [Unknown]

NARRATIVE: CASE EVENT DATE: 20230423
